FAERS Safety Report 6972446 (Version 10)
Quarter: 2013Q2

REPORT INFORMATION
  Report Type: Spontaneous
  Country: US (occurrence: US)
  Receive Date: 20080328
  Receipt Date: 20130430
  Transmission Date: 20140414
  Serious: Yes (Hospitalization)
  Sender: FDA-Public Use
  Company Number: US-BIOGENIDEC-2008BI007495

PATIENT
  Age: 58 Year
  Sex: Female
  Weight: 53 kg

DRUGS (3)
  1. AVONEX [Suspect]
     Indication: MULTIPLE SCLEROSIS
     Route: 030
     Dates: start: 20020729, end: 200511
  2. AVONEX [Suspect]
     Indication: MULTIPLE SCLEROSIS
     Route: 030
     Dates: start: 200512
  3. METOPROLOL [Concomitant]
     Indication: HYPERTENSION
     Dates: end: 20080211

REACTIONS (16)
  - Fall [Recovered/Resolved]
  - Humerus fracture [Recovered/Resolved]
  - Concussion [Recovered/Resolved]
  - Muscular weakness [Unknown]
  - Psychotic disorder [Recovered/Resolved]
  - Thirst [Recovered/Resolved]
  - Superficial injury of eye [Unknown]
  - Scratch [Unknown]
  - Tinea infection [Unknown]
  - Gait disturbance [Unknown]
  - Hyperkeratosis [Unknown]
  - Hypertension [Unknown]
  - Multiple sclerosis [Unknown]
  - Injury [Recovered/Resolved]
  - Depressed mood [Unknown]
  - Multiple sclerosis relapse [Recovered/Resolved]
